FAERS Safety Report 6480619-7 (Version None)
Quarter: 2009Q4

REPORT INFORMATION
  Report Type: 
  Country: None (occurrence: None)
  Receive Date: 20091203
  Receipt Date: 20091123
  Transmission Date: 20100525
  Serious: Yes (Death)
  Sender: FDA-Public Use
  Company Number: CERZ-1001052

PATIENT
  Age: 81 Year
  Sex: Male
  Weight: 80 kg

DRUGS (1)
  1. CEREZYME [Suspect]
     Indication: GAUCHER'S DISEASE
     Dosage: 3600 U, Q2W,
     Dates: start: 20000908, end: 20090422

REACTIONS (3)
  - CORONARY ARTERY DISEASE [None]
  - LYMPHOPLASMACYTOID LYMPHOMA/IMMUNOCYTOMA [None]
  - OSTEONECROSIS [None]
